FAERS Safety Report 14203540 (Version 4)
Quarter: 2018Q1

REPORT INFORMATION
  Report Type: Spontaneous
  Country: US (occurrence: US)
  Receive Date: 20171120
  Receipt Date: 20180202
  Transmission Date: 20180508
  Serious: Yes (Other)
  Sender: FDA-Public Use
  Company Number: US-AMGEN-USASP2017173033

PATIENT
  Age: 38 Year
  Sex: Female
  Weight: 77.98 kg

DRUGS (11)
  1. ENBREL [Suspect]
     Active Substance: ETANERCEPT
     Indication: RHEUMATOID ARTHRITIS
     Dosage: 50 MG, QWK
     Route: 058
     Dates: start: 201303, end: 201312
  2. NORGESTIMATE AND ETHINYL ESTRADIOL [Concomitant]
     Active Substance: ETHINYL ESTRADIOL\NORGESTIMATE
     Dosage: 0.18/0.215/0.25 MG-35 MCG (28), QD
  3. TOFACITINIB [Concomitant]
     Active Substance: TOFACITINIB
     Indication: RHEUMATOID ARTHRITIS
     Dosage: UNK
  4. LEFLUNOMIDE. [Concomitant]
     Active Substance: LEFLUNOMIDE
     Indication: RHEUMATOID ARTHRITIS
     Dosage: 20 MG, QD
     Route: 065
     Dates: start: 201307, end: 201507
  5. ENBREL [Suspect]
     Active Substance: ETANERCEPT
     Indication: POLYARTHRITIS
  6. PREDNISONE. [Concomitant]
     Active Substance: PREDNISONE
  7. SULFASALAZINE. [Suspect]
     Active Substance: SULFASALAZINE
     Indication: RHEUMATOID ARTHRITIS
     Dosage: UNK
     Route: 065
     Dates: start: 201401, end: 201403
  8. DESONIDE. [Concomitant]
     Active Substance: DESONIDE
     Dosage: UNK UNK, BID
  9. FLUOCINONIDE. [Concomitant]
     Active Substance: FLUOCINONIDE
     Dosage: UNK UNK, BID
     Route: 061
  10. XELJANZ [Concomitant]
     Active Substance: TOFACITINIB CITRATE
     Dosage: 5 MG, BID
     Route: 048
  11. CLOBETASOL [Concomitant]
     Active Substance: CLOBETASOL
     Dosage: UNK, BID

REACTIONS (10)
  - Drug hypersensitivity [Unknown]
  - Off label use [Unknown]
  - Psoriasis [Not Recovered/Not Resolved]
  - Musculoskeletal stiffness [Unknown]
  - Joint warmth [Unknown]
  - Gastrointestinal disorder [Unknown]
  - Red blood cell count decreased [Unknown]
  - Synovitis [Unknown]
  - Arthropathy [Not Recovered/Not Resolved]
  - Rash [Unknown]

NARRATIVE: CASE EVENT DATE: 2013
